FAERS Safety Report 7717291-1 (Version None)
Quarter: 2011Q3

REPORT INFORMATION
  Report Type: 
  Country: None (occurrence: None)
  Receive Date: 20110826
  Receipt Date: 20110826
  Transmission Date: 20111222
  Serious: Yes (Hospitalization)
  Sender: FDA-Public Use
  Company Number: None

PATIENT
  Sex: Female

DRUGS (3)
  1. VOTRIENT [Suspect]
  2. VOTRIENT [Suspect]
     Dosage: 800 MG ONCE DAILY ORAL
     Route: 048
     Dates: start: 20110428
  3. VOTRIENT [Suspect]
     Dosage: 800 MG ONCE DAILY ORAL
     Route: 048
     Dates: start: 20110613

REACTIONS (4)
  - DIARRHOEA [None]
  - NAUSEA [None]
  - DEHYDRATION [None]
  - VOMITING [None]
